FAERS Safety Report 24082758 (Version 2)
Quarter: 2025Q4

REPORT INFORMATION
  Report Type: Report from Study
  Country: BR (occurrence: BR)
  Receive Date: 20240712
  Receipt Date: 20251001
  Transmission Date: 20260118
  Serious: No
  Sender: TAKEDA
  Company Number: BR-TAKEDA-2023TUS117724

PATIENT
  Age: 19 Year
  Sex: Male

DRUGS (1)
  1. VEDOLIZUMAB [Suspect]
     Active Substance: VEDOLIZUMAB
     Indication: Crohn^s disease
     Dosage: 300 MILLIGRAM

REACTIONS (2)
  - No adverse event [Unknown]
  - Product availability issue [Unknown]
